FAERS Safety Report 7031355-X (Version None)
Quarter: 2010Q4

REPORT INFORMATION
  Report Type: 
  Country: None (occurrence: None)
  Receive Date: 20101006
  Receipt Date: 20100926
  Transmission Date: 20110411
  Serious: Yes (Other)
  Sender: FDA-Public Use
  Company Number: TR-TYCO HEALTHCARE/MALLINCKRODT-T201002050

PATIENT
  Age: 55 Year
  Sex: Male
  Weight: 107 kg

DRUGS (5)
  1. OPTIRAY 350 [Suspect]
     Indication: ANGIOGRAM
     Dosage: 100 ML, SINGLE
  2. OPTIRAY 350 [Suspect]
     Indication: ANGIOPLASTY
  3. AMLODIPINE [Concomitant]
     Dosage: 10 MG, QD
  4. LOSARTAN [Concomitant]
     Dosage: 100 MG, QD
  5. CARVEDILOL [Concomitant]
     Dosage: 50 MG, QD

REACTIONS (1)
  - TOXIC ENCEPHALOPATHY [None]
